FAERS Safety Report 19461618 (Version 2)
Quarter: 2021Q3

REPORT INFORMATION
  Report Type: Spontaneous
  Country: JP (occurrence: JP)
  Receive Date: 20210625
  Receipt Date: 20210715
  Transmission Date: 20211014
  Serious: Yes (Other)
  Sender: FDA-Public Use
  Company Number: JP-PURDUE-USA-2021-0272153

PATIENT
  Age: 85 Year
  Sex: Male

DRUGS (5)
  1. OXINORM (OXYCODONE HYDROCHLORIDE) [Suspect]
     Active Substance: OXYCODONE HYDROCHLORIDE
     Dosage: 7.5 MG, DAILY [3 PACKAGES], STRENGTH 2.5
     Route: 048
     Dates: start: 20210613
  2. OXINORM (OXYCODONE HYDROCHLORIDE) [Suspect]
     Active Substance: OXYCODONE HYDROCHLORIDE
     Dosage: UNK [RESCUE DOSE OF 2.5 MG/TIME]
     Route: 048
     Dates: start: 20210612
  3. OXINORM (OXYCODONE HYDROCHLORIDE) [Suspect]
     Active Substance: OXYCODONE HYDROCHLORIDE
     Indication: CANCER PAIN
     Dosage: 7.5 MG, DAILY [3 PACKAGES, ADMINISTRATION CONTINUED)]
     Route: 048
     Dates: start: 20210616
  4. LOXONIN [Concomitant]
     Active Substance: LOXOPROFEN SODIUM
     Indication: CANCER PAIN
     Dosage: UNK
     Route: 048
  5. OXINORM (OXYCODONE HYDROCHLORIDE) [Suspect]
     Active Substance: OXYCODONE HYDROCHLORIDE
     Dosage: 5 MG, DAILY [DOSE OWAS LIMITED TO 5 MG/DAY (2 PACKAGES)]]
     Route: 048
     Dates: start: 20210614

REACTIONS (1)
  - Delirium [Recovered/Resolved]

NARRATIVE: CASE EVENT DATE: 20210613
